FAERS Safety Report 6211118-5 (Version None)
Quarter: 2009Q2

REPORT INFORMATION
  Report Type: 
  Country: None (occurrence: None)
  Receive Date: 20090528
  Receipt Date: 20090518
  Transmission Date: 20091009
  Serious: Yes (Hospitalization, Other)
  Sender: FDA-Public Use
  Company Number: 2009AP002015

PATIENT
  Age: 79 Year
  Sex: Female

DRUGS (4)
  1. PAROXETINE HYDROCHLORIDE [Suspect]
     Dosage: 10 MG; QD
  2. MIRTAZAPINE [Concomitant]
  3. AMLODIPINE [Concomitant]
  4. DONEPEZIL HCL [Concomitant]

REACTIONS (4)
  - IMMOBILE [None]
  - RHABDOMYOLYSIS [None]
  - SEROTONIN SYNDROME [None]
  - URINARY INCONTINENCE [None]
